FAERS Safety Report 13836325 (Version 16)
Quarter: 2019Q3

REPORT INFORMATION
  Report Type: Report from Study
  Country: BR (occurrence: BR)
  Receive Date: 20170804
  Receipt Date: 20190701
  Transmission Date: 20191004
  Serious: Yes (Other)
  Sender: FDA-Public Use
  Company Number: PHHY2017BR113601

PATIENT
  Age: 57 Year
  Sex: Female
  Weight: 60.7 kg

DRUGS (12)
  1. COSENTYX [Suspect]
     Active Substance: SECUKINUMAB
     Indication: PSORIATIC ARTHROPATHY
     Dosage: 300 MG, QMO
     Route: 058
     Dates: start: 20170314
  2. INSULIN [Concomitant]
     Active Substance: INSULIN NOS
     Indication: DIABETES MELLITUS
     Dosage: 15 U, BID
     Route: 058
  3. COSENTYX [Suspect]
     Active Substance: SECUKINUMAB
     Dosage: 300 MG, UNK
     Route: 058
     Dates: start: 20180405
  4. COSENTYX [Suspect]
     Active Substance: SECUKINUMAB
     Dosage: UNK
     Route: 065
     Dates: start: 20180306
  5. COSENTYX [Suspect]
     Active Substance: SECUKINUMAB
     Dosage: UNK
     Route: 065
     Dates: start: 20190531
  6. COSENTYX [Suspect]
     Active Substance: SECUKINUMAB
     Dosage: 300 MG, QMO
     Route: 058
     Dates: start: 20170609
  7. COSENTYX [Suspect]
     Active Substance: SECUKINUMAB
     Dosage: 300 MG, QMO
     Route: 058
     Dates: start: 201708
  8. COSENTYX [Suspect]
     Active Substance: SECUKINUMAB
     Dosage: UNK
     Route: 065
     Dates: start: 20180510
  9. CLOPIDOGREL [Suspect]
     Active Substance: CLOPIDOGREL BISULFATE
     Indication: PRODUCT USED FOR UNKNOWN INDICATION
     Dosage: UNK
     Route: 065
  10. INSULIN ILETIN I REGULAR [Concomitant]
     Indication: DIABETES MELLITUS
     Dosage: 10 U (7 TO 10 UNITS), QD
     Route: 058
  11. COSENTYX [Suspect]
     Active Substance: SECUKINUMAB
     Indication: PSORIASIS
     Dosage: 150 MG, Q2MO
     Route: 058
     Dates: start: 20170314
  12. COSENTYX [Suspect]
     Active Substance: SECUKINUMAB
     Dosage: 300 MG, QMO
     Route: 058
     Dates: start: 20180226

REACTIONS (28)
  - Myocardial ischaemia [Not Recovered/Not Resolved]
  - Pain in jaw [Not Recovered/Not Resolved]
  - Infection [Not Recovered/Not Resolved]
  - Cardiac disorder [Unknown]
  - Decreased immune responsiveness [Not Recovered/Not Resolved]
  - Skin irritation [Not Recovered/Not Resolved]
  - Drug ineffective [Unknown]
  - Chest pain [Recovering/Resolving]
  - Influenza [Unknown]
  - Skin disorder [Not Recovered/Not Resolved]
  - Blister [Not Recovered/Not Resolved]
  - Neck pain [Unknown]
  - Stress [Not Recovered/Not Resolved]
  - Skin injury [Unknown]
  - Psoriatic arthropathy [Unknown]
  - Cough [Unknown]
  - Dizziness [Unknown]
  - Abscess [Recovering/Resolving]
  - Psoriasis [Not Recovered/Not Resolved]
  - Malaise [Unknown]
  - Vomiting [Unknown]
  - Pharyngeal abscess [Recovering/Resolving]
  - Erythema [Unknown]
  - Skin plaque [Not Recovered/Not Resolved]
  - Pain [Unknown]
  - Pharyngitis [Recovering/Resolving]
  - Macule [Unknown]
  - Erythrodermic psoriasis [Recovering/Resolving]

NARRATIVE: CASE EVENT DATE: 20170531
